FAERS Safety Report 5535412-6 (Version None)
Quarter: 2007Q4

REPORT INFORMATION
  Report Type: 
  Country: None (occurrence: None)
  Receive Date: 20071206
  Receipt Date: 20071126
  Transmission Date: 20080405
  Serious: Yes (Other)
  Sender: FDA-Public Use
  Company Number: GB-PFIZER INC-2007099807

PATIENT
  Age: 62 Year
  Sex: Female

DRUGS (5)
  1. CHAMPIX [Suspect]
     Indication: SMOKING CESSATION THERAPY
     Route: 048
  2. BENDROFLUMETHIAZIDE [Concomitant]
  3. DIAZEPAM [Concomitant]
  4. TEMAZEPAM [Concomitant]
  5. TRAMADOL HCL [Concomitant]

REACTIONS (3)
  - ABDOMINAL DISTENSION [None]
  - MUSCLE SPASMS [None]
  - PAIN IN EXTREMITY [None]
